FAERS Safety Report 8236399-8 (Version None)
Quarter: 2012Q1

REPORT INFORMATION
  Report Type: 
  Country: None (occurrence: None)
  Receive Date: 20120327
  Receipt Date: 20120322
  Transmission Date: 20120608
  Serious: No
  Sender: FDA-Public Use
  Company Number: US-PFIZER INC-2012075301

PATIENT
  Sex: Female
  Weight: 60.771 kg

DRUGS (5)
  1. PREMARIN [Suspect]
     Indication: HORMONE REPLACEMENT THERAPY
     Dosage: DAILY
     Route: 048
  2. PREMARIN [Suspect]
     Indication: VAGINAL DISORDER
  3. PREMARIN [Suspect]
     Indication: NEURALGIA
  4. PREMARIN [Suspect]
     Indication: SKIN DISORDER
  5. PROZAC [Concomitant]
     Indication: DEPRESSION
     Dosage: UNK, DAILY

REACTIONS (2)
  - ARTHRALGIA [None]
  - NEURALGIA [None]
